FAERS Safety Report 5987782 (Version 17)
Quarter: 2014Q3

REPORT INFORMATION
  Report Type: Spontaneous
  Country: US (occurrence: US)
  Receive Date: 20060221
  Receipt Date: 20140912
  Transmission Date: 20150326
  Serious: Yes (Hospitalization, Other)
  Sender: FDA-Public Use
  Company Number: PHEH2004US12084

PATIENT
  Age: 52 Year
  Sex: Male
  Weight: 80.73 kg

DRUGS (33)
  1. NEURONTIN [Concomitant]
     Active Substance: GABAPENTIN
     Indication: NEUROPATHY PERIPHERAL
     Dosage: 400 MG, QD
     Dates: start: 19991104
  2. RITALIN [Concomitant]
     Active Substance: METHYLPHENIDATE HYDROCHLORIDE
     Dosage: 5 MG, BID
     Route: 048
     Dates: start: 1997
  3. COLACE [Concomitant]
     Active Substance: DOCUSATE SODIUM
     Route: 048
     Dates: start: 1997
  4. DEXEDRINE [Concomitant]
     Active Substance: DEXTROAMPHETAMINE SULFATE
     Dosage: 10 MG, UNK
  5. ZOMETA [Suspect]
     Active Substance: ZOLEDRONIC ACID
     Indication: PLASMA CELL MYELOMA
     Dosage: UNK UKN, QMO
     Route: 065
     Dates: start: 2001
  6. PAXIL [Concomitant]
     Active Substance: PAROXETINE HYDROCHLORIDE
     Dosage: 10 MG, UNK
     Dates: start: 19991123
  7. SERZONE [Concomitant]
     Active Substance: NEFAZODONE HYDROCHLORIDE
     Dosage: 1 DF, UNK
     Dates: start: 20000222
  8. EPOGEN [Concomitant]
     Active Substance: ERYTHROPOIETIN
     Indication: ANAEMIA
     Dosage: 10000 U, TIW
     Dates: start: 19960926
  9. OXYCODONE HYDROCHLORIDE. [Concomitant]
     Active Substance: OXYCODONE HYDROCHLORIDE
     Dosage: 30 MG, UNK
  10. THALIDOMIDE [Concomitant]
     Active Substance: THALIDOMIDE
     Indication: PLASMA CELL MYELOMA
     Dosage: 300 MG, QD
     Dates: start: 1998
  11. ZOLOFT [Concomitant]
     Active Substance: SERTRALINE HYDROCHLORIDE
     Indication: DEPRESSION
     Dosage: 200 MG, QD
     Route: 048
     Dates: start: 1995
  12. NORVASC [Concomitant]
     Active Substance: AMLODIPINE BESYLATE
  13. COUMADIN [Concomitant]
     Active Substance: WARFARIN SODIUM
  14. LEXAPRO [Concomitant]
     Active Substance: ESCITALOPRAM OXALATE
  15. AREDIA [Suspect]
     Active Substance: PAMIDRONATE DISODIUM
     Indication: BONE DISORDER
     Dosage: 60 MG, QMO
     Route: 042
     Dates: start: 19950313
  16. THALIDOMIDE [Concomitant]
     Active Substance: THALIDOMIDE
     Dosage: 400 MG, QD
     Dates: start: 199903
  17. WELLBUTRIN [Concomitant]
     Active Substance: BUPROPION HYDROCHLORIDE
     Dosage: 450 MG, QD
     Dates: start: 19991104
  18. MORPHINE SULFATE. [Concomitant]
     Active Substance: MORPHINE SULFATE
     Indication: MYALGIA
     Dosage: 30 MG, UNK
     Dates: start: 1995
  19. INTERFERON ALFA NOS [Concomitant]
     Active Substance: INTERFERON ALFA-2A OR INTERFERON ALFA-2B
     Indication: PLASMA CELL MYELOMA
     Dosage: 6 MIU, UNK
     Dates: start: 1995, end: 19970528
  20. THALIDOMIDE [Concomitant]
     Active Substance: THALIDOMIDE
     Dosage: 100 MG, QD
     Dates: start: 199911
  21. VIAGRA [Concomitant]
     Active Substance: SILDENAFIL CITRATE
     Dosage: 50 MG, PRN
     Dates: start: 19991123
  22. KLONOPIN [Concomitant]
     Active Substance: CLONAZEPAM
     Dosage: 0.5 MG, Q12H
     Dates: start: 19991123
  23. SENOKOT [Concomitant]
     Active Substance: SENNOSIDES
     Route: 048
     Dates: start: 1997
  24. ZANTAC [Concomitant]
     Active Substance: RANITIDINE HYDROCHLORIDE
     Dosage: 150 MG, QD
     Route: 048
     Dates: start: 1997
  25. ZESTRIL [Concomitant]
     Active Substance: LISINOPRIL
     Indication: HYPERTENSION
     Dosage: 5 MG, UNK
     Route: 048
     Dates: start: 19991004
  26. AREDIA [Suspect]
     Active Substance: PAMIDRONATE DISODIUM
     Dosage: 90 MG, QMO
     Dates: start: 19951227, end: 20000519
  27. REGLAN [Concomitant]
     Active Substance: METOCLOPRAMIDE HYDROCHLORIDE
  28. PROCRIT [Concomitant]
     Active Substance: ERYTHROPOIETIN
     Route: 065
     Dates: start: 1997
  29. HYTRIN [Concomitant]
     Active Substance: TERAZOSIN HYDROCHLORIDE
     Dosage: 10 MG, UNK
  30. CYMBALTA [Concomitant]
     Active Substance: DULOXETINE HYDROCHLORIDE
     Dosage: 20 MG, UNK
  31. TOPROL XL [Concomitant]
     Active Substance: METOPROLOL SUCCINATE
     Dosage: 25 MG, UNK
  32. VIAGRA [Concomitant]
     Active Substance: SILDENAFIL CITRATE
     Indication: LIBIDO DECREASED
     Dates: start: 19980528
  33. AMBIEN [Concomitant]
     Active Substance: ZOLPIDEM TARTRATE
     Dosage: 10 MG, UNK

REACTIONS (88)
  - Extradural abscess [Unknown]
  - Encopresis [Unknown]
  - Tenderness [Unknown]
  - Gingivitis [Unknown]
  - Anal fissure [Unknown]
  - Heart rate decreased [Unknown]
  - Renal atrophy [Unknown]
  - Duodenal ulcer [Unknown]
  - Gastritis [Unknown]
  - Oral infection [Unknown]
  - Oropharyngeal pain [Unknown]
  - Tooth fracture [Not Recovered/Not Resolved]
  - Dental plaque [Unknown]
  - Intervertebral disc degeneration [Unknown]
  - Scoliosis [Unknown]
  - Cardiomyopathy [Unknown]
  - Renal cyst [Unknown]
  - Joint instability [Unknown]
  - Nausea [Recovered/Resolved]
  - Alopecia [Unknown]
  - Dyspepsia [Unknown]
  - Streptococcal bacteraemia [Recovered/Resolved]
  - Abdominal pain upper [Unknown]
  - Viral infection [Recovered/Resolved]
  - Gingival recession [Unknown]
  - Amyloidosis [Unknown]
  - Meniscus injury [Unknown]
  - Oral pain [Unknown]
  - Toothache [Unknown]
  - Blood creatinine increased [Unknown]
  - Arthralgia [Unknown]
  - Libido decreased [Unknown]
  - Haematocrit decreased [Unknown]
  - Asthenia [Unknown]
  - Arrhythmia [Unknown]
  - Chest pain [Unknown]
  - Sepsis [Unknown]
  - Dysaesthesia [Unknown]
  - Dyspnoea [Unknown]
  - Androgens decreased [Unknown]
  - Eosinophil count increased [Unknown]
  - Vomiting [Unknown]
  - Cellulitis [Unknown]
  - Blood immunoglobulin G increased [Unknown]
  - Dehydration [Unknown]
  - Device failure [Not Recovered/Not Resolved]
  - Dental fistula [Unknown]
  - Pain in extremity [Unknown]
  - Bacterial infection [Unknown]
  - Neck pain [Unknown]
  - Intervertebral disc displacement [Unknown]
  - Renal failure chronic [Unknown]
  - Bladder dilatation [Unknown]
  - Haemoglobin decreased [Unknown]
  - Large intestine polyp [Unknown]
  - Hiatus hernia [Unknown]
  - Gastric mucosa erythema [Unknown]
  - Malignant neoplasm progression [Unknown]
  - Osteonecrosis of jaw [Unknown]
  - Primary sequestrum [Unknown]
  - Pulmonary function test abnormal [Unknown]
  - Sinusitis [Unknown]
  - Hypoaesthesia [Unknown]
  - Myelomalacia [Unknown]
  - Joint effusion [Unknown]
  - Urinary retention [Unknown]
  - Hair growth abnormal [Unknown]
  - Dental caries [Unknown]
  - Plasmacytoma [Unknown]
  - Disease progression [Unknown]
  - Deep vein thrombosis [Unknown]
  - Paraesthesia [Unknown]
  - Spinal osteoarthritis [Unknown]
  - Cervical spinal stenosis [Unknown]
  - Aortic dilatation [Unknown]
  - Dental prosthesis user [Unknown]
  - Osteomyelitis [Unknown]
  - Neuropathy peripheral [Unknown]
  - Depression [Unknown]
  - Intervertebral disc protrusion [Unknown]
  - Ejection fraction decreased [Unknown]
  - Neuritis [Unknown]
  - Osteoarthritis [Unknown]
  - Fatigue [Unknown]
  - Monocyte count increased [Unknown]
  - Granulocyte count decreased [Unknown]
  - Renal injury [Unknown]
  - Bladder dysfunction [Unknown]

NARRATIVE: CASE EVENT DATE: 200207
